FAERS Safety Report 5922562-5 (Version None)
Quarter: 2008Q4

REPORT INFORMATION
  Report Type: 
  Country: None (occurrence: None)
  Receive Date: 20081017
  Receipt Date: 20081009
  Transmission Date: 20090506
  Serious: Yes (Death, Other)
  Sender: FDA-Public Use
  Company Number: PHBS2008TR05964

PATIENT
  Age: 12 Year
  Sex: Male

DRUGS (4)
  1. CYCLOSPORINE [Suspect]
     Indication: STEM CELL TRANSPLANT
     Dosage: 3 MG/KG/DAY
  2. BUSULFAN [Suspect]
     Indication: STEM CELL TRANSPLANT
     Dosage: 1.5 MG/KG/DAY
     Route: 048
  3. CYCLOPHOSPHAMIDE [Suspect]
     Indication: STEM CELL TRANSPLANT
     Dosage: 10 MG/KG/DAY
     Route: 042
  4. METHOTREXATE [Suspect]
     Indication: STEM CELL TRANSPLANT
     Dosage: 5 MG/M2/DAY ON DAYS 1, 3, 6

REACTIONS (4)
  - ANOREXIA [None]
  - MUCOSAL INFLAMMATION [None]
  - NEPHROPATHY TOXIC [None]
  - VENOOCCLUSIVE LIVER DISEASE [None]
